FAERS Safety Report 23886570 (Version 2)
Quarter: 2024Q3

REPORT INFORMATION
  Report Type: Spontaneous
  Country: BR (occurrence: BR)
  Receive Date: 20240522
  Receipt Date: 20240925
  Transmission Date: 20241016
  Serious: Yes (Other)
  Sender: LUNDBECK
  Company Number: BR-SA-2023SA259462

PATIENT

DRUGS (11)
  1. SABRIL [Suspect]
     Active Substance: VIGABATRIN
     Indication: Tuberous sclerosis complex
     Dosage: WEEK 1: 1 DF, BID (FOR 7 DAYS)
     Route: 048
  2. SABRIL [Suspect]
     Active Substance: VIGABATRIN
     Indication: Epilepsy
     Dosage: WEEK 2: 1 DF, QD IN THE MORNING (FOR 7 DAYS)
     Route: 048
  3. SABRIL [Suspect]
     Active Substance: VIGABATRIN
     Dosage: 1 DF, Q8H
     Route: 048
  4. CLOBAZAM [Suspect]
     Active Substance: CLOBAZAM
     Indication: Product used for unknown indication
     Dosage: 1 DF, QD (IN THE EVENING)
     Route: 048
  5. RISPERIDONE [Suspect]
     Active Substance: RISPERIDONE
     Indication: Product used for unknown indication
     Dosage: 0.5 DF, QD (IN THE MORNING)
     Route: 048
  6. VALPROIC ACID [Concomitant]
     Active Substance: VALPROIC ACID
     Indication: Product used for unknown indication
     Dosage: DAY 1 TO DAY 3: GIVE 5 ML IN THE MORNING, 5 ML IN THE AFTERNOON, 6 ML IN THE EVENING
     Route: 065
  7. VALPROIC ACID [Concomitant]
     Active Substance: VALPROIC ACID
     Dosage: DAY 4 TO DAY 6: GIVE 6 ML IN THE MORNING, 5 ML IN THE AFTERNOON 6 ML IN THE EVENING
  8. VALPROIC ACID [Concomitant]
     Active Substance: VALPROIC ACID
     Dosage: DAY 7 TO DAY 9: GIVE 5 ML IN THE MORNING, 6 ML IN THE AFTERNOON 6 MI IN THE EVENING
  9. VALPROIC ACID [Concomitant]
     Active Substance: VALPROIC ACID
     Dosage: DAY 10 TO DAY 12: GIVE 6 ML IN THE MORNING, 6 ML IN THE AFTERNOON 7 ML IN THE EVENING
  10. VALPROIC ACID [Concomitant]
     Active Substance: VALPROIC ACID
     Dosage: DAY 13 TO DAY 15: GIVE 7 ML IN THE MORNING, 6 ML IN THE AFTERNOON 7 ML IN THE EVENING
  11. VALPROIC ACID [Concomitant]
     Active Substance: VALPROIC ACID
     Dosage: 7 ML, Q8H (FROM DAY 15)

REACTIONS (6)
  - Tuberous sclerosis complex [Unknown]
  - Epilepsy [Unknown]
  - Condition aggravated [Unknown]
  - Poor quality product administered [Unknown]
  - Therapy partial responder [Unknown]
  - Product use in unapproved indication [Unknown]
